FAERS Safety Report 18079592 (Version 1)
Quarter: 2020Q3

REPORT INFORMATION
  Report Type: Spontaneous
  Country: US (occurrence: US)
  Receive Date: 20200727
  Receipt Date: 20200727
  Transmission Date: 20201103
  Serious: Yes (Disabling)
  Sender: FDA-Public Use
  Company Number: None

PATIENT
  Age: 70 Year
  Sex: Female
  Weight: 68.04 kg

DRUGS (2)
  1. MACROPLASTIQUE INJECTION [DEVICE] [Suspect]
     Active Substance: DEVICE
  2. BOTOX [Suspect]
     Active Substance: ONABOTULINUMTOXINA

REACTIONS (7)
  - Insomnia [None]
  - Pain [None]
  - Discomfort [None]
  - Abdominal rigidity [None]
  - Urinary retention [None]
  - Micturition urgency [None]
  - Frustration tolerance decreased [None]

NARRATIVE: CASE EVENT DATE: 20180612
